FAERS Safety Report 12906280 (Version 1)
Quarter: 2016Q4

REPORT INFORMATION
  Report Type: Spontaneous
  Country: US (occurrence: US)
  Receive Date: 20161102
  Receipt Date: 20161102
  Transmission Date: 20170207
  Serious: Yes (Disabling, Other)
  Sender: FDA-Public Use
  Company Number: None

PATIENT
  Age: 47 Year
  Sex: Female
  Weight: 92.99 kg

DRUGS (3)
  1. LISINOPRIL. [Concomitant]
     Active Substance: LISINOPRIL
  2. METFORMIN [Suspect]
     Active Substance: METFORMIN HYDROCHLORIDE
     Indication: HYPERGLYCAEMIA
     Dosage: METFORMIN 500 MG TABLETS - 2 TO 4 PILLS DAILY - PO?ENTERED DRUG METFORMIN TWICE - 2 NDC #^S - ONE FOR MYLAN - ONE FOR MYLAN +ONE FOR AMNEAL -
     Route: 048
     Dates: start: 201207, end: 2014
  3. METFORMIN [Suspect]
     Active Substance: METFORMIN HYDROCHLORIDE

REACTIONS (7)
  - Erythema [None]
  - Pruritus [None]
  - Palpitations [None]
  - Skin disorder [None]
  - Alopecia [None]
  - Blister [None]
  - Purulence [None]

NARRATIVE: CASE EVENT DATE: 20120727
